FAERS Safety Report 16528984 (Version 1)
Quarter: 2019Q3

REPORT INFORMATION
  Report Type: Other
  Country: US (occurrence: US)
  Receive Date: 20190703
  Receipt Date: 20190703
  Transmission Date: 20191004
  Serious: Yes (Other)
  Sender: FDA-Public Use
  Company Number: US-BIOVITRUM-2019US1010

PATIENT
  Sex: Female

DRUGS (2)
  1. KINERET [Suspect]
     Active Substance: ANAKINRA
     Indication: STILL^S DISEASE
     Route: 058
     Dates: start: 20190302
  2. RITUXAN [Concomitant]
     Active Substance: RITUXIMAB

REACTIONS (4)
  - Pulmonary hypertension [Unknown]
  - Off label use [Unknown]
  - Pneumonia [Unknown]
  - Adverse drug reaction [Unknown]
